FAERS Safety Report 7964943-4 (Version None)
Quarter: 2011Q4

REPORT INFORMATION
  Report Type: 
  Country: None (occurrence: None)
  Receive Date: 20111208
  Receipt Date: 20111208
  Transmission Date: 20120403
  Serious: No
  Sender: FDA-Public Use
  Company Number: None

PATIENT
  Age: 35 Year
  Sex: Female
  Weight: 62.595 kg

DRUGS (2)
  1. OMNIPAQUE 180 [Suspect]
     Indication: INTERVERTEBRAL DISC PROTRUSION
     Dosage: 1 ML
     Dates: start: 20110209, end: 20110209
  2. BETAMETHASONE [Concomitant]
     Dosage: 3 ML

REACTIONS (1)
  - ARACHNOIDITIS [None]
